FAERS Safety Report 6090924-4 (Version None)
Quarter: 2009Q1

REPORT INFORMATION
  Report Type: 
  Country: None (occurrence: None)
  Receive Date: 20090224
  Receipt Date: 20090130
  Transmission Date: 20090719
  Serious: Yes (Death)
  Sender: FDA-Public Use
  Company Number: US-TYCO HEALTHCARE/MALLINCKRODT-T200900278

PATIENT
  Age: 31 Year
  Sex: Male

DRUGS (7)
  1. ACETAMINOPHEN AND OXYCODONE HCL [Suspect]
     Route: 048
  2. METHADOSE [Suspect]
     Route: 048
  3. HYDROCODONE [Suspect]
     Route: 048
  4. CYCLOBENZAPRINE [Suspect]
     Route: 048
  5. ESZOPICLONE [Suspect]
     Route: 048
  6. DULOXETINE [Suspect]
     Route: 048
  7. RISPERIDONE [Suspect]
     Route: 048

REACTIONS (2)
  - CARDIO-RESPIRATORY ARREST [None]
  - COMPLETED SUICIDE [None]
